FAERS Safety Report 8970808 (Version 3)
Quarter: 2013Q1

REPORT INFORMATION
  Report Type: Spontaneous
  Country: US (occurrence: US)
  Receive Date: 20121218
  Receipt Date: 20130311
  Transmission Date: 20140127
  Serious: Yes (Other)
  Sender: FDA-Public Use
  Company Number: US-ROCHE-1167786

PATIENT
  Sex: Female

DRUGS (9)
  1. XOLAIR [Suspect]
     Indication: PRODUCT USED FOR UNKNOWN INDICATION
     Route: 065
  2. XOLAIR [Suspect]
     Route: 065
     Dates: start: 201211
  3. THEOPHYLLINE [Concomitant]
  4. KLOR-CON [Concomitant]
  5. AMILORIDE HCL [Concomitant]
  6. SYMBICORT [Concomitant]
  7. SINGULAIR [Concomitant]
  8. PULMICORT [Concomitant]
  9. XOPENEX [Concomitant]
     Route: 065

REACTIONS (7)
  - Throat tightness [Unknown]
  - Vomiting [Unknown]
  - Pruritus [Unknown]
  - Asthma [Unknown]
  - Rhinorrhoea [Unknown]
  - Pulmonary congestion [Unknown]
  - Food allergy [Unknown]
